FAERS Safety Report 6058397-5 (Version None)
Quarter: 2009Q1

REPORT INFORMATION
  Report Type: 
  Country: None (occurrence: None)
  Receive Date: 20090128
  Receipt Date: 20090128
  Transmission Date: 20090719
  Serious: No
  Sender: FDA-Public Use
  Company Number: None

PATIENT
  Age: 59 Year
  Sex: Male
  Weight: 87.7 kg

DRUGS (1)
  1. AZITHROMYCIN [Suspect]
     Indication: BRONCHITIS
     Dosage: 300 MG EVERY DAY PO
     Route: 048
     Dates: start: 20080730, end: 20080803

REACTIONS (3)
  - ASTHENIA [None]
  - DYSPNOEA [None]
  - RASH [None]
